FAERS Safety Report 4455860-5 (Version None)
Quarter: 2004Q3

REPORT INFORMATION
  Report Type: 
  Country: None (occurrence: None)
  Receive Date: 20040922
  Receipt Date: 20040816
  Transmission Date: 20050211
  Serious: Yes (Other)
  Sender: FDA-Public Use
  Company Number: FR-ROCHE-377770

PATIENT
  Age: 50 Year
  Sex: Male

DRUGS (1)
  1. RIVOTRIL [Suspect]
     Indication: TINNITUS
     Route: 048
     Dates: start: 19940615

REACTIONS (5)
  - BURNING SENSATION [None]
  - EPILEPSY [None]
  - HEMIPARESIS [None]
  - HYPERVENTILATION [None]
  - TACHYCARDIA [None]
